FAERS Safety Report 17326348 (Version 2)
Quarter: 2020Q4

REPORT INFORMATION
  Report Type: Spontaneous
  Country: US (occurrence: US)
  Receive Date: 20200127
  Receipt Date: 20201210
  Transmission Date: 20210113
  Serious: No
  Sender: FDA-Public Use
  Company Number: US-PFIZER INC-2020034675

PATIENT
  Age: 52 Year

DRUGS (1)
  1. PENICILLIN G BENZATHINE/PENICILLIN G PROCAINE [Suspect]
     Active Substance: PENICILLIN G BENZATHINE\PENICILLIN G PROCAINE
     Dosage: UNK

REACTIONS (2)
  - Drug hypersensitivity [Unknown]
  - Fungal infection [Unknown]
